FAERS Safety Report 21600452 (Version 1)
Quarter: 2022Q4

REPORT INFORMATION
  Report Type: Report from Study
  Country: US (occurrence: US)
  Receive Date: 20221116
  Receipt Date: 20221116
  Transmission Date: 20230112
  Serious: Yes (Hospitalization, Other)
  Sender: FDA-Public Use
  Company Number: US-ABBVIE-4198945

PATIENT
  Sex: Male

DRUGS (20)
  1. HUMIRA [Suspect]
     Active Substance: ADALIMUMAB
     Indication: Crohn^s disease
     Route: 058
     Dates: end: 20201110
  2. OPIUM [Concomitant]
     Active Substance: OPIUM
     Indication: Product used for unknown indication
     Dosage: 10MG/ML  0.6ML  4X DAILY AS NEEDED
     Route: 065
  3. PENTASA [Concomitant]
     Active Substance: MESALAMINE
     Indication: Product used for unknown indication
     Dosage: TWO TIME A DAY
     Route: 065
  4. CALCIUM\MAGNESIUM [Concomitant]
     Active Substance: CALCIUM\MAGNESIUM
     Indication: Product used for unknown indication
     Dosage: 1000MG TWO TIMES A DAY
     Route: 065
  5. BUDESONIDE [Concomitant]
     Active Substance: BUDESONIDE
     Indication: Product used for unknown indication
     Dosage: 3MG QD
     Route: 065
  6. COPPER GLUCONATE [Concomitant]
     Active Substance: COPPER GLUCONATE
     Indication: Product used for unknown indication
     Route: 065
  7. ZINC SULFATE [Concomitant]
     Active Substance: ZINC SULFATE
     Indication: Product used for unknown indication
     Dosage: QD
     Route: 065
  8. ROSUVASTATIN CALCIUM [Concomitant]
     Active Substance: ROSUVASTATIN CALCIUM
     Indication: Product used for unknown indication
     Dosage: QD
     Route: 065
  9. RIFAXIMIN [Concomitant]
     Active Substance: RIFAXIMIN
     Indication: Product used for unknown indication
     Dosage: BID
     Route: 065
  10. ONDANSETRON [Concomitant]
     Active Substance: ONDANSETRON
     Indication: Product used for unknown indication
     Dosage: 4MG EVERY 8HRS AS NEEDED
     Route: 065
  11. METOPROLOL SUCCINATE [Concomitant]
     Active Substance: METOPROLOL SUCCINATE
     Indication: Product used for unknown indication
     Dosage: QD
     Route: 065
  12. ASPIRIN [Concomitant]
     Active Substance: ASPIRIN
     Indication: Product used for unknown indication
     Dosage: QD
     Route: 065
  13. ferrous gluconate iron [Concomitant]
     Indication: Product used for unknown indication
     Dosage: BID
     Route: 065
  14. DALTEPARIN [Concomitant]
     Active Substance: DALTEPARIN
     Indication: Product used for unknown indication
     Dosage: 5000 UNITS QD
     Route: 065
  15. CYANOCOBALAMIN [Concomitant]
     Active Substance: CYANOCOBALAMIN
     Indication: Product used for unknown indication
     Dosage: 1000MCG/WEEKLY
     Route: 065
  16. Lisinopril 5mg QD [Concomitant]
     Indication: Product used for unknown indication
     Dosage: QD
     Route: 065
  17. VITAMINS [Concomitant]
     Active Substance: VITAMINS
     Indication: Product used for unknown indication
     Dosage: 1 TABLET BID
     Route: 065
  18. diphenoxylate-atropine 2 Tab TID [Concomitant]
     Indication: Product used for unknown indication
     Dosage: 2 TABLET TID
     Route: 065
  19. CHOLECALCIFEROL [Concomitant]
     Active Substance: CHOLECALCIFEROL
     Indication: Product used for unknown indication
     Dosage: 10,000 UNITS BID
     Route: 065
  20. NITROGLYCERIN [Concomitant]
     Active Substance: NITROGLYCERIN
     Indication: Product used for unknown indication
     Route: 060

REACTIONS (29)
  - Chest pain [Unknown]
  - Coronary artery disease [Unknown]
  - Leg amputation [Unknown]
  - Coagulopathy [Unknown]
  - Diabetes mellitus [Unknown]
  - Deep vein thrombosis [Unknown]
  - Coronary artery stenosis [Unknown]
  - Hypertension [Unknown]
  - Hypersensitivity [Unknown]
  - Basal cell carcinoma [Unknown]
  - Angiopathy [Unknown]
  - Hyperhidrosis [Unknown]
  - Peripheral arterial occlusive disease [Unknown]
  - Ankylosing spondylitis [Unknown]
  - Adrenal insufficiency [Unknown]
  - Asthma [Unknown]
  - Short-bowel syndrome [Unknown]
  - Anxiety [Unknown]
  - Carotid artery stenosis [Unknown]
  - Gastrooesophageal reflux disease [Unknown]
  - Nephrolithiasis [Unknown]
  - Cardiac murmur [Unknown]
  - Phlebitis [Unknown]
  - Hypertransaminasaemia [Unknown]
  - Vitamin K deficiency [Unknown]
  - Pulmonary embolism [Unknown]
  - Crohn^s disease [Unknown]
  - Lung disorder [Unknown]
  - Thrombophlebitis [Unknown]

NARRATIVE: CASE EVENT DATE: 20201108
